FAERS Safety Report 7228888-X (Version None)
Quarter: 2011Q1

REPORT INFORMATION
  Report Type: 
  Country: None (occurrence: None)
  Receive Date: 20110117
  Receipt Date: 20110105
  Transmission Date: 20110831
  Serious: Yes (Hospitalization, Other)
  Sender: FDA-Public Use
  Company Number: US-ELI_LILLY_AND_COMPANY-US201002003888

PATIENT
  Sex: Female

DRUGS (7)
  1. TYLENOL (CAPLET) [Concomitant]
     Dosage: UNK, 4/D
  2. VIT D [Concomitant]
     Dosage: 2000 MG, DAILY (1/D)
  3. WARFARIN [Concomitant]
     Dosage: 6 MG, UNK
  4. MULTI-VITAMIN [Concomitant]
     Dosage: UNK, 2/D
  5. POTASSIUM [Concomitant]
     Dosage: 1TAB, DAILY (1/D)
  6. FORTEO [Suspect]
     Indication: OSTEOPOROSIS
     Dosage: 20 UG, DAILY (1/D)
     Dates: start: 20090801
  7. SIMVASTATIN [Concomitant]
     Dosage: 40 MG, EACH EVENING

REACTIONS (6)
  - FALL [None]
  - DYSSTASIA [None]
  - MEMORY IMPAIRMENT [None]
  - GAIT DISTURBANCE [None]
  - DYSGRAPHIA [None]
  - CEREBROVASCULAR ACCIDENT [None]
